FAERS Safety Report 16821241 (Version 1)
Quarter: 2019Q3

REPORT INFORMATION
  Report Type: Spontaneous
  Country: US (occurrence: US)
  Receive Date: 20190918
  Receipt Date: 20190918
  Transmission Date: 20191005
  Serious: No
  Sender: FDA-Public Use
  Company Number: US-ALIMERA SCIENCES INC.-US-FL-2017-003539

PATIENT

DRUGS (1)
  1. ILUVIEN [Suspect]
     Active Substance: FLUOCINOLONE ACETONIDE
     Indication: DIABETIC RETINAL OEDEMA
     Dosage: 0.25 ?G, UNK
     Route: 031
     Dates: start: 20170328

REACTIONS (2)
  - Device failure [Unknown]
  - Product administration error [Unknown]

NARRATIVE: CASE EVENT DATE: 20170328
